FAERS Safety Report 20680562 (Version 2)
Quarter: 2022Q2

REPORT INFORMATION
  Report Type: Other
  Country: US (occurrence: None)
  Receive Date: 20220406
  Receipt Date: 20220623
  Transmission Date: 20220720
  Serious: Yes (Other)
  Sender: FDA-Public Use
  Company Number: US-ROCHE-3062071

PATIENT
  Sex: Female

DRUGS (1)
  1. PULMOZYME [Suspect]
     Active Substance: DORNASE ALFA
     Indication: Cystic fibrosis
     Dosage: NEBULIZE THE CONTENTS OF 1 VIAL(S) EVERY DAY. KEEP REFRIGERATED UNTIL USE.
     Route: 065

REACTIONS (4)
  - Biliary tract disorder [Unknown]
  - Off label use [Unknown]
  - Liver disorder [Unknown]
  - Sepsis [Unknown]
